FAERS Safety Report 8178364-5 (Version None)
Quarter: 2012Q1

REPORT INFORMATION
  Report Type: 
  Country: None (occurrence: None)
  Receive Date: 20120301
  Receipt Date: 20120228
  Transmission Date: 20120608
  Serious: Yes (Other)
  Sender: FDA-Public Use
  Company Number: GB-PFIZER INC-2012054826

PATIENT
  Age: 35 Year
  Sex: Female

DRUGS (2)
  1. MIRTAZAPINE [Concomitant]
  2. SERTRALINE HYDROCHLORIDE [Suspect]
     Dosage: 100 MG, UNK

REACTIONS (1)
  - COLITIS MICROSCOPIC [None]
